FAERS Safety Report 9511325 (Version 1)
Quarter: 2013Q3

REPORT INFORMATION
  Report Type: Spontaneous
  Country: US (occurrence: None)
  Receive Date: 20130909
  Receipt Date: 20130909
  Transmission Date: 20140515
  Serious: Yes (Disabling)
  Sender: FDA-Public Use
  Company Number: None

PATIENT
  Age: 57 Year
  Sex: Female
  Weight: 52.16 kg

DRUGS (1)
  1. CIPROFLOXACIN [Suspect]
     Indication: URINARY TRACT INFECTION
     Route: 048

REACTIONS (7)
  - Muscular weakness [None]
  - Neuropathy peripheral [None]
  - Arthralgia [None]
  - Tendon pain [None]
  - Insomnia [None]
  - Anxiety [None]
  - Vitreous detachment [None]
